FAERS Safety Report 12693590 (Version 1)
Quarter: 2016Q3

REPORT INFORMATION
  Report Type: Spontaneous
  Country: US (occurrence: US)
  Receive Date: 20160829
  Receipt Date: 20160829
  Transmission Date: 20161109
  Serious: Yes (Hospitalization)
  Sender: FDA-Public Use
  Company Number: US-UNITED THERAPEUTICS-UNT-2016-011606

PATIENT
  Age: 56 Year
  Sex: Female
  Weight: 74.83 kg

DRUGS (3)
  1. REVATIO [Suspect]
     Active Substance: SILDENAFIL CITRATE
     Indication: PRODUCT USED FOR UNKNOWN INDICATION
     Route: 065
  2. VERAPAMIL [Concomitant]
     Active Substance: VERAPAMIL HYDROCHLORIDE
     Indication: PRODUCT USED FOR UNKNOWN INDICATION
  3. REMODULIN [Suspect]
     Active Substance: TREPROSTINIL
     Indication: PULMONARY ARTERIAL HYPERTENSION
     Dosage: 0.036 ?G/KG, CONTINUING
     Route: 058
     Dates: start: 20080722

REACTIONS (6)
  - Pulmonary congestion [Recovering/Resolving]
  - Oxygen saturation decreased [Recovering/Resolving]
  - Diarrhoea [Unknown]
  - Cough [Unknown]
  - Dyspnoea [Unknown]
  - Panic attack [Unknown]

NARRATIVE: CASE EVENT DATE: 201607
